FAERS Safety Report 4753158-9 (Version None)
Quarter: 2005Q3

REPORT INFORMATION
  Report Type: 
  Country: None (occurrence: None)
  Receive Date: 20050823
  Receipt Date: 20050810
  Transmission Date: 20060218
  Serious: Yes (Other)
  Sender: FDA-Public Use
  Company Number: 2005PV000397

PATIENT
  Age: 56 Year
  Sex: Female
  Weight: 90.7194 kg

DRUGS (13)
  1. BYETTA [Suspect]
     Indication: DIABETES MELLITUS NON-INSULIN-DEPENDENT
     Dosage: 5 MCG; BID; SC
     Route: 058
     Dates: start: 20050713
  2. PLAVIX [Concomitant]
  3. LASIX [Concomitant]
  4. ACTOS [Concomitant]
  5. CARTIA XT [Concomitant]
  6. LISINOPRIL [Concomitant]
  7. LIPITOR [Concomitant]
  8. POTASSIUM [Concomitant]
  9. DARVOCET-N 100 [Concomitant]
  10. MINITRAN [Concomitant]
  11. VITAMIN B COMPLEX CAP [Concomitant]
  12. ZYRTEC [Concomitant]
  13. MACRODANTIN [Concomitant]

REACTIONS (3)
  - CARDIAC FAILURE [None]
  - CEREBROVASCULAR ACCIDENT [None]
  - WEIGHT FLUCTUATION [None]
